FAERS Safety Report 25459560 (Version 1)
Quarter: 2025Q2

REPORT INFORMATION
  Report Type: Spontaneous
  Country: AU (occurrence: AU)
  Receive Date: 20250620
  Receipt Date: 20250620
  Transmission Date: 20250717
  Serious: Yes (Other)
  Sender: TOLMAR
  Company Number: AU-Tolmar-TLM-2025-03321

PATIENT
  Age: 51 Year

DRUGS (3)
  1. TESTOSTERONE UNDECANOATE [Suspect]
     Active Substance: TESTOSTERONE UNDECANOATE
     Indication: Hormone replacement therapy
     Dosage: REANDRON 1000 MG, 12 WEEKLY
     Route: 030
  2. TESTOSTERONE UNDECANOATE [Suspect]
     Active Substance: TESTOSTERONE UNDECANOATE
     Indication: Gender dysphoria
     Dosage: 1000 MG EVERY 14 WEEKS
     Route: 030
  3. TESTOSTERONE ENANTHATE [Suspect]
     Active Substance: TESTOSTERONE ENANTHATE
     Indication: Hormone replacement therapy
     Route: 030
     Dates: start: 201511

REACTIONS (2)
  - Ovarian endometrioid carcinoma [Unknown]
  - Off label use [Unknown]
